FAERS Safety Report 10453927 (Version 2)
Quarter: 2014Q4

REPORT INFORMATION
  Report Type: Spontaneous
  Country: RO (occurrence: RO)
  Receive Date: 20140915
  Receipt Date: 20141203
  Transmission Date: 20150528
  Serious: Yes (Other)
  Sender: FDA-Public Use
  Company Number: RO-TEVA-507549ISR

PATIENT
  Weight: 85 kg

DRUGS (5)
  1. EUTHYROX [Concomitant]
     Active Substance: LEVOTHYROXINE SODIUM
     Indication: GOITRE
  2. LIV 52 [Concomitant]
     Dosage: 2 WEEKS EVERY MONTH
  3. RISEDRONATE TEVA [Suspect]
     Active Substance: RISEDRONATE SODIUM
     Indication: OSTEOPOROSIS
     Dosage: 5 MILLIGRAM DAILY;
     Route: 048
     Dates: start: 2011
  4. OMEGA 3 [Concomitant]
     Active Substance: OMEGA-3 FATTY ACIDS
  5. LAGOSA [Concomitant]
     Dosage: 2 WEEKS EVERY MONTH

REACTIONS (1)
  - Hepatitis C [Unknown]
